FAERS Safety Report 7162560-X (Version None)
Quarter: 2010Q4

REPORT INFORMATION
  Report Type: 
  Country: None (occurrence: None)
  Receive Date: 20101215
  Receipt Date: 20091124
  Transmission Date: 20110411
  Serious: Yes (Hospitalization)
  Sender: FDA-Public Use
  Company Number: BO-PFIZER INC-2009302867

PATIENT
  Age: 25 Year
  Sex: Female

DRUGS (1)
  1. LYRICA [Suspect]
     Indication: POST HERPETIC NEURALGIA
     Dosage: 150 MG, 1X/DAY
     Route: 048
     Dates: start: 20091119, end: 20091120

REACTIONS (3)
  - AGGRESSION [None]
  - CONFUSIONAL STATE [None]
  - TIC [None]
